FAERS Safety Report 6692099-7 (Version None)
Quarter: 2010Q2

REPORT INFORMATION
  Report Type: 
  Country: None (occurrence: None)
  Receive Date: 20100422
  Receipt Date: 20090901
  Transmission Date: 20101027
  Serious: No
  Sender: FDA-Public Use
  Company Number: US-ASTRAZENECA-2009SE11098

PATIENT
  Age: 78 Year
  Sex: Female
  Weight: 81.6 kg

DRUGS (6)
  1. TOPROL-XL [Suspect]
     Route: 048
  2. HYZAAR [Concomitant]
     Dosage: 100/25 DAILY
     Route: 048
  3. VITAMIN A [Concomitant]
  4. VITAMIN B COMPLEX TAB [Concomitant]
  5. VITAMIN C [Concomitant]
  6. VITAMIN D [Concomitant]

REACTIONS (3)
  - DIARRHOEA [None]
  - PERIPHERAL COLDNESS [None]
  - VAGINAL HAEMORRHAGE [None]
